FAERS Safety Report 10582083 (Version 6)
Quarter: 2018Q1

REPORT INFORMATION
  Report Type: Report from Study
  Country: JP (occurrence: JP)
  Receive Date: 20141113
  Receipt Date: 20180209
  Transmission Date: 20180508
  Serious: Yes (Hospitalization, Other)
  Sender: FDA-Public Use
  Company Number: JP-ALEXION PHARMACEUTICALS INC.-A201404271

PATIENT
  Age: 10 Month
  Sex: Male
  Weight: 9.6 kg

DRUGS (11)
  1. SOLIRIS [Suspect]
     Active Substance: ECULIZUMAB
     Dosage: 300 MG, Q3W
     Route: 042
     Dates: start: 20141027
  2. CELLCEPT [Concomitant]
     Active Substance: MYCOPHENOLATE MOFETIL\MYCOPHENOLATE MOFETIL HYDROCHLORIDE
     Indication: GRAFT VERSUS HOST DISEASE
     Dosage: 150 MG, TID
     Route: 048
     Dates: start: 20140815, end: 20140902
  3. BACTAR [Concomitant]
     Active Substance: SULFAMERAZINE\TRIMETHOPRIM
     Dosage: 0.4 G, BID
     Route: 065
     Dates: start: 20141024
  4. BACTAR [Concomitant]
     Active Substance: SULFAMERAZINE\TRIMETHOPRIM
     Indication: PROPHYLAXIS
     Dosage: 0.2 G, BID
     Route: 048
     Dates: start: 20140515, end: 20141023
  5. SOLIRIS [Suspect]
     Active Substance: ECULIZUMAB
     Dosage: UNK
  6. PREDNISOLONE. [Concomitant]
     Active Substance: PREDNISOLONE
     Indication: PRODUCT USED FOR UNKNOWN INDICATION
     Dosage: 9.00 MG, 1-3 TIMES/DAILY
     Route: 048
     Dates: start: 20140821, end: 20141020
  7. SOLIRIS [Suspect]
     Active Substance: ECULIZUMAB
     Dosage: 300 MG, EVERY 3 WEEKS
     Route: 042
     Dates: start: 20140509, end: 20140530
  8. SAWACILLIN [Concomitant]
     Active Substance: AMOXICILLIN
     Indication: INFECTION PROPHYLAXIS
     Dosage: 150.00 MG, TID
     Route: 065
     Dates: start: 20141024
  9. SOLIRIS [Suspect]
     Active Substance: ECULIZUMAB
     Indication: HAEMOLYTIC URAEMIC SYNDROME
     Dosage: 300 MG, QW
     Route: 042
     Dates: start: 20140502, end: 20140502
  10. SOLIRIS [Suspect]
     Active Substance: ECULIZUMAB
     Dosage: 300 MG, QW
     Route: 042
     Dates: start: 20141020, end: 20141027
  11. CELLCEPT [Concomitant]
     Active Substance: MYCOPHENOLATE MOFETIL\MYCOPHENOLATE MOFETIL HYDROCHLORIDE
     Dosage: 150 MG, TID
     Route: 048
     Dates: start: 20140903, end: 20141204

REACTIONS (5)
  - Platelet count decreased [Recovered/Resolved]
  - Inappropriate schedule of drug administration [Unknown]
  - Infection [Recovered/Resolved]
  - Femur fracture [Not Recovered/Not Resolved]
  - Infection [Recovered/Resolved]

NARRATIVE: CASE EVENT DATE: 20141020
